FAERS Safety Report 8318645-5 (Version None)
Quarter: 2012Q2

REPORT INFORMATION
  Report Type: 
  Country: None (occurrence: None)
  Receive Date: 20120426
  Receipt Date: 20120426
  Transmission Date: 20120825
  Serious: No
  Sender: FDA-Public Use
  Company Number: None

PATIENT
  Sex: Female

DRUGS (1)
  1. REMICADE [Suspect]
     Indication: CROHN'S DISEASE
     Dosage: 600 MG Q6W IV
     Route: 042
     Dates: start: 20101222, end: 20120315

REACTIONS (4)
  - STAPHYLOCOCCAL INFECTION [None]
  - CHEST DISCOMFORT [None]
  - NAUSEA [None]
  - THROAT TIGHTNESS [None]
